FAERS Safety Report 10473352 (Version 9)
Quarter: 2019Q3

REPORT INFORMATION
  Report Type: Spontaneous
  Country: US (occurrence: US)
  Receive Date: 20140924
  Receipt Date: 20190912
  Transmission Date: 20191004
  Serious: No
  Sender: FDA-Public Use
  Company Number: US-PFIZER INC-2014263735

PATIENT
  Age: 59 Year
  Sex: Male

DRUGS (2)
  1. SKELAXIN [Suspect]
     Active Substance: METAXALONE
     Indication: MUSCLE SPASMS
  2. SKELAXIN [Suspect]
     Active Substance: METAXALONE
     Indication: JOINT INJURY
     Dosage: 800 MG, 1X/DAY
     Dates: start: 2009

REACTIONS (3)
  - Fall [Not Recovered/Not Resolved]
  - Hypoacusis [Not Recovered/Not Resolved]
  - Dysstasia [Not Recovered/Not Resolved]
